FAERS Safety Report 15448479 (Version 2)
Quarter: 2018Q4

REPORT INFORMATION
  Report Type: Spontaneous
  Country: KR (occurrence: KR)
  Receive Date: 20180929
  Receipt Date: 20181005
  Transmission Date: 20190204
  Serious: Yes (Death, Other)
  Sender: FDA-Public Use
  Company Number: KR-B.I. PHARMACEUTICALS,INC./RIDGEFIELD-2018-BI-048071

PATIENT
  Age: 74 Year
  Sex: Male

DRUGS (21)
  1. ASIMA [Concomitant]
     Active Substance: DOXOFYLLINE
     Route: 065
     Dates: start: 20180408
  2. MEPTIN [Concomitant]
     Active Substance: PROCATEROL HYDROCHLORIDE
     Indication: NON-SMALL CELL LUNG CANCER
     Route: 065
     Dates: start: 20170829, end: 20170928
  3. URSA [Concomitant]
     Active Substance: URSODIOL
     Indication: PROPHYLAXIS
     Route: 065
     Dates: start: 20180429
  4. MUCOSTA [Concomitant]
     Active Substance: REBAMIPIDE
     Indication: PROPHYLAXIS
     Route: 065
     Dates: start: 20170922, end: 20170928
  5. TIROXIN [Concomitant]
     Indication: NON-SMALL CELL LUNG CANCER
     Route: 065
     Dates: start: 20180507
  6. GODEX [Concomitant]
     Indication: PROPHYLAXIS
     Route: 065
     Dates: start: 20180416
  7. MEPTIN [Concomitant]
     Active Substance: PROCATEROL HYDROCHLORIDE
     Route: 065
     Dates: start: 20180408
  8. TELMITREND [Concomitant]
     Active Substance: TELMISARTAN
     Indication: HYPERTENSION
     Route: 065
     Dates: start: 1997
  9. CONBLOC [Concomitant]
     Indication: ATRIAL FIBRILLATION
     Route: 065
     Dates: start: 20180424
  10. GASTER [Concomitant]
     Active Substance: FAMOTIDINE
     Indication: GASTRITIS PROPHYLAXIS
     Route: 065
     Dates: start: 20170929, end: 20171023
  11. GASTER [Concomitant]
     Active Substance: FAMOTIDINE
     Route: 065
     Dates: start: 20180311, end: 20180313
  12. GILOTRIF [Suspect]
     Active Substance: AFATINIB
     Indication: NON-SMALL CELL LUNG CANCER
     Route: 048
     Dates: start: 20170921
  13. NICETILE [Concomitant]
     Active Substance: ACETYLCARNITINE HYDROCHLORIDE
     Indication: NON-SMALL CELL LUNG CANCER
     Route: 065
     Dates: start: 20170926
  14. MUCOSTA [Concomitant]
     Active Substance: REBAMIPIDE
     Route: 065
     Dates: start: 20180411
  15. ZEMAGIS [Concomitant]
     Indication: PRURITUS
     Dosage: FORM OF ADMIN : LOTION
     Route: 065
     Dates: start: 20170902
  16. NICETILE [Concomitant]
     Active Substance: ACETYLCARNITINE HYDROCHLORIDE
     Indication: METASTASES TO CENTRAL NERVOUS SYSTEM
  17. GASTER [Concomitant]
     Active Substance: FAMOTIDINE
     Route: 065
     Dates: start: 20180417
  18. LOSARTAN. [Concomitant]
     Active Substance: LOSARTAN
     Indication: HAEMATURIA
     Route: 065
     Dates: start: 20180501
  19. APETROL ES [Concomitant]
     Indication: NON-SMALL CELL LUNG CANCER
     Route: 065
     Dates: start: 20171024
  20. ASIMA [Concomitant]
     Active Substance: DOXOFYLLINE
     Indication: NON-SMALL CELL LUNG CANCER
     Route: 065
     Dates: start: 20170829, end: 20170928
  21. PRADAXA [Concomitant]
     Active Substance: DABIGATRAN ETEXILATE MESYLATE
     Indication: DEEP VEIN THROMBOSIS
     Route: 065
     Dates: start: 20180427

REACTIONS (1)
  - Multiple organ dysfunction syndrome [Fatal]

NARRATIVE: CASE EVENT DATE: 20180916
